FAERS Safety Report 17725125 (Version 1)
Quarter: 2020Q2

REPORT INFORMATION
  Report Type: Spontaneous
  Country: US (occurrence: US)
  Receive Date: 20200429
  Receipt Date: 20200429
  Transmission Date: 20200714
  Serious: No
  Sender: FDA-Public Use
  Company Number: US-TEVA-2020-US-1228006

PATIENT
  Age: 32 Year
  Sex: Female

DRUGS (4)
  1. PREDNISONE. [Suspect]
     Active Substance: PREDNISONE
     Indication: HERPES GESTATIONIS
     Route: 048
  2. DIPHENHYDRAMINE. [Suspect]
     Active Substance: DIPHENHYDRAMINE
     Indication: HERPES GESTATIONIS
     Dosage: 150 MILLIGRAM DAILY;
     Route: 048
  3. HYDROCORTISONE. [Suspect]
     Active Substance: HYDROCORTISONE
     Indication: HERPES GESTATIONIS
     Route: 061
  4. CALAMINE [Suspect]
     Active Substance: CALAMINE\FERRIC OXIDE RED\ZINC OXIDE
     Indication: HERPES GESTATIONIS
     Dosage: FORMULATION: LOTION
     Route: 061

REACTIONS (3)
  - Maternal exposure during pregnancy [Unknown]
  - Drug ineffective [Unknown]
  - Normal newborn [Unknown]
